FAERS Safety Report 12281331 (Version 1)
Quarter: 2016Q2

REPORT INFORMATION
  Report Type: Spontaneous
  Country: US (occurrence: US)
  Receive Date: 20160419
  Receipt Date: 20160419
  Transmission Date: 20160815
  Serious: No
  Sender: FDA-Public Use
  Company Number: US-WARNER CHILCOTT, LLC-1050702

PATIENT
  Sex: Male

DRUGS (2)
  1. DELZICOL [Suspect]
     Active Substance: MESALAMINE
     Route: 065
  2. PROTONIX [Suspect]
     Active Substance: PANTOPRAZOLE SODIUM
     Route: 065

REACTIONS (2)
  - False positive investigation result [Unknown]
  - Drug interaction [Unknown]
